FAERS Safety Report 6158675-5 (Version None)
Quarter: 2009Q2

REPORT INFORMATION
  Report Type: 
  Country: None (occurrence: None)
  Receive Date: 20090417
  Receipt Date: 20090410
  Transmission Date: 20091009
  Serious: Yes (Other)
  Sender: FDA-Public Use
  Company Number: A0667643A

PATIENT
  Age: 10 Year
  Sex: Male

DRUGS (3)
  1. ADVAIR HFA [Suspect]
     Indication: ASTHMA
     Dosage: 1PUFF TWICE PER DAY
     Route: 055
     Dates: start: 20040101
  2. CLARITIN [Concomitant]
  3. SINGULAIR [Concomitant]

REACTIONS (8)
  - ASTHMA [None]
  - BRONCHITIS [None]
  - CHEST PAIN [None]
  - CONGENITAL GENITAL MALFORMATION [None]
  - OSTEOGENESIS IMPERFECTA [None]
  - PRODUCTIVE COUGH [None]
  - SKIN STRIAE [None]
  - WEIGHT INCREASED [None]
